FAERS Safety Report 8876405 (Version 2)
Quarter: 2013Q2

REPORT INFORMATION
  Report Type: Spontaneous
  Country: US (occurrence: None)
  Receive Date: 20120426
  Receipt Date: 20120703
  Transmission Date: 20140414
  Serious: Yes (Other)
  Sender: FDA-Public Use
  Company Number: PHEH2012US004618

PATIENT
  Age: 58 Year
  Sex: Female

DRUGS (4)
  1. GILENYA (FTY) CAPSULE [Suspect]
     Indication: MULTIPLE SCLEROSIS
     Route: 048
     Dates: start: 20120131, end: 20120206
  2. LEXAPRO (ESCITALOPRAM OXALATE) [Concomitant]
  3. NOSIC [Concomitant]
  4. TRILEPTAL (OXCARBAZEPINE) [Concomitant]

REACTIONS (1)
  - Rash [None]
